FAERS Safety Report 6788839-9 (Version None)
Quarter: 2010Q2

REPORT INFORMATION
  Report Type: 
  Country: None (occurrence: None)
  Receive Date: 20100623
  Receipt Date: 20080521
  Transmission Date: 20101027
  Serious: No
  Sender: FDA-Public Use
  Company Number: US-PFIZER INC-2008044374

PATIENT
  Sex: Female

DRUGS (3)
  1. AROMASIN [Suspect]
  2. TAMOXIFEN [Suspect]
  3. ARIMIDEX [Suspect]

REACTIONS (2)
  - FLUID RETENTION [None]
  - SWELLING [None]
